FAERS Safety Report 9686111 (Version 3)
Quarter: 2013Q4

REPORT INFORMATION
  Report Type: Report from Study
  Country: AR (occurrence: AR)
  Receive Date: 20131113
  Receipt Date: 20131218
  Transmission Date: 20140711
  Serious: Yes (Other)
  Sender: FDA-Public Use
  Company Number: PHHY2013AR129400

PATIENT
  Sex: Female

DRUGS (4)
  1. DIOVAN [Suspect]
     Indication: HYPERTENSION
     Dosage: 240 MG (160 MG PLUS 80 MG), DAILY
     Route: 048
  2. DIOVAN [Suspect]
     Dosage: 1 DF (80MG), DAILY
     Route: 048
     Dates: end: 201311
  3. DIOVAN [Suspect]
     Dosage: 0.5 DF (160MG), DAILY
     Route: 048
     Dates: start: 2012
  4. DIOVAN [Suspect]
     Dosage: 1 DF (VALS 160 MG), DAILY
     Route: 048
     Dates: start: 201311

REACTIONS (11)
  - Vitreous disorder [Recovered/Resolved]
  - Heat stroke [Recovered/Resolved]
  - Dizziness [Recovered/Resolved]
  - Local swelling [Recovering/Resolving]
  - Joint swelling [Unknown]
  - Erythema [Unknown]
  - Fear [Unknown]
  - Bone pain [Unknown]
  - Blood pressure fluctuation [Recovered/Resolved]
  - Blood pressure increased [Unknown]
  - Wrong technique in drug usage process [Unknown]
